FAERS Safety Report 20453174 (Version 3)
Quarter: 2022Q4

REPORT INFORMATION
  Report Type: Other
  Country: US (occurrence: None)
  Receive Date: 20220210
  Receipt Date: 20221230
  Transmission Date: 20230113
  Serious: Yes (Hospitalization)
  Sender: FDA-Public Use
  Company Number: US-ROCHE-3016039

PATIENT
  Age: 26 Year
  Sex: Female
  Weight: 36.7 kg

DRUGS (1)
  1. EVRYSDI [Suspect]
     Active Substance: RISDIPLAM
     Indication: Spinal muscular atrophy
     Route: 048
     Dates: start: 20210924

REACTIONS (4)
  - Gastrointestinal disorder [Not Recovered/Not Resolved]
  - Device occlusion [Not Recovered/Not Resolved]
  - Device related infection [Unknown]
  - Weight decreased [Unknown]
